APPROVED DRUG PRODUCT: PAROXETINE HYDROCHLORIDE
Active Ingredient: PAROXETINE HYDROCHLORIDE
Strength: EQ 20MG BASE
Dosage Form/Route: TABLET;ORAL
Application: A205528 | Product #002
Applicant: JUBILANT GENERICS LTD
Approved: Nov 27, 2015 | RLD: No | RS: No | Type: DISCN